FAERS Safety Report 8605867 (Version 2)
Quarter: 2013Q4

REPORT INFORMATION
  Report Type: Report from Study
  Country: DE (occurrence: DE)
  Receive Date: 20120608
  Receipt Date: 20131024
  Transmission Date: 20140711
  Serious: Yes (Other)
  Sender: FDA-Public Use
  Company Number: DE-ROCHE-1075666

PATIENT
  Sex: Female
  Weight: 77 kg

DRUGS (2)
  1. TOCILIZUMAB [Suspect]
     Indication: RHEUMATOID ARTHRITIS
     Route: 042
     Dates: start: 20111021
  2. IBUPROFEN [Concomitant]
     Route: 065
     Dates: start: 201103

REACTIONS (1)
  - Epilepsy [Not Recovered/Not Resolved]
